FAERS Safety Report 23664314 (Version 1)
Quarter: 2024Q1

REPORT INFORMATION
  Report Type: Spontaneous
  Country: CN (occurrence: CN)
  Receive Date: 20240322
  Receipt Date: 20240322
  Transmission Date: 20240410
  Serious: Yes (Other)
  Sender: FDA-Public Use
  Company Number: CN-RK PHARMA, INC-20240300013

PATIENT

DRUGS (4)
  1. PALIPERIDONE [Interacting]
     Active Substance: PALIPERIDONE
     Indication: Product used for unknown indication
     Dosage: 9 MILLIGRAM, QD (450 MG CHLORPROMAZINE, EQUIVALENT DOSE)
     Route: 065
  2. PALIPERIDONE [Interacting]
     Active Substance: PALIPERIDONE
     Dosage: 6 MILLIGRAM, QD (300 MG CHLORPROMAZINE, EQUIVALENT DOSE)
     Route: 065
  3. LITHIUM CARBONATE [Interacting]
     Active Substance: LITHIUM CARBONATE
     Indication: Product used for unknown indication
     Dosage: 500 MILLIGRAM, BID
     Route: 065
  4. LEVOTHYROXINE [Concomitant]
     Active Substance: LEVOTHYROXINE\LEVOTHYROXINE SODIUM
     Indication: Product used for unknown indication
     Dosage: UNK, UNKNOWN
     Route: 065

REACTIONS (4)
  - Hypothyroidism [Recovered/Resolved]
  - Drug interaction [Recovered/Resolved]
  - Bradycardia [Recovered/Resolved]
  - Sinus arrest [Recovered/Resolved]
